FAERS Safety Report 6650904-4 (Version None)
Quarter: 2010Q1

REPORT INFORMATION
  Report Type: 
  Country: None (occurrence: None)
  Receive Date: 20100325
  Receipt Date: 20100301
  Transmission Date: 20100710
  Serious: No
  Sender: FDA-Public Use
  Company Number: US-BIOGENIDEC-2010BI008014

PATIENT
  Age: 32 Year
  Sex: Female

DRUGS (2)
  1. TYSABRI [Suspect]
     Indication: MULTIPLE SCLEROSIS
     Route: 042
     Dates: start: 20091002
  2. STOOL SOFTENERS (NOS) [Concomitant]
     Indication: CONSTIPATION

REACTIONS (6)
  - CONTUSION [None]
  - DIARRHOEA [None]
  - FALL [None]
  - HEAD INJURY [None]
  - PAIN IN EXTREMITY [None]
  - VAGINAL INFECTION [None]
